FAERS Safety Report 8079055-1 (Version None)
Quarter: 2012Q1

REPORT INFORMATION
  Report Type: 
  Country: None (occurrence: None)
  Receive Date: 20120128
  Receipt Date: 20110806
  Transmission Date: 20120608
  Serious: No
  Sender: FDA-Public Use
  Company Number: US-ABBOTT-11P-163-0844745-00

PATIENT
  Age: 45 Year
  Sex: Female

DRUGS (3)
  1. HUMIRA [Suspect]
     Indication: RHEUMATOID ARTHRITIS
  2. PREDNISONE TAB [Concomitant]
     Indication: RHEUMATOID ARTHRITIS
     Dosage: 10 MG IN AM
  3. ATIVAN [Concomitant]
     Indication: ANXIETY
     Dosage: 0.75 MG TWICE A DAY

REACTIONS (5)
  - MUSCULAR WEAKNESS [None]
  - INJECTION SITE NODULE [None]
  - MYALGIA [None]
  - NEPHROLITHIASIS [None]
  - RENAL PAIN [None]
